FAERS Safety Report 13225811 (Version 2)
Quarter: 2017Q3

REPORT INFORMATION
  Report Type: Spontaneous
  Country: US (occurrence: US)
  Receive Date: 20170213
  Receipt Date: 20170809
  Transmission Date: 20171127
  Serious: No
  Sender: FDA-Public Use
  Company Number: US-BAYER-2017-027646

PATIENT
  Age: 77 Year
  Sex: Male
  Weight: 78 kg

DRUGS (9)
  1. DOMEBORO [Suspect]
     Active Substance: ALUMINUM ACETATE
     Indication: BLISTER
     Dosage: UNK
     Route: 061
     Dates: start: 201702
  2. ZANTAC [Concomitant]
     Active Substance: RANITIDINE HYDROCHLORIDE
  3. DOMEBORO [Suspect]
     Active Substance: ALUMINUM ACETATE
     Indication: PAIN
  4. LOSARTAN. [Concomitant]
     Active Substance: LOSARTAN
  5. WARFARIN [Concomitant]
     Active Substance: WARFARIN
  6. METOPROLOL. [Concomitant]
     Active Substance: METOPROLOL
  7. DILTIAZEM. [Concomitant]
     Active Substance: DILTIAZEM
  8. LOTRIMIN ULTRA [Suspect]
     Active Substance: BUTENAFINE HYDROCHLORIDE
     Indication: HERPES SIMPLEX
     Dosage: UNK UNK, BID
     Route: 061
     Dates: start: 20170205, end: 20170208
  9. ATORVASTATIN [Concomitant]
     Active Substance: ATORVASTATIN

REACTIONS (4)
  - Incorrect dosage administered [Recovered/Resolved]
  - Confusional state [Not Recovered/Not Resolved]
  - Dizziness [Not Recovered/Not Resolved]
  - Product use in unapproved indication [None]

NARRATIVE: CASE EVENT DATE: 20170205
